FAERS Safety Report 8887722 (Version 2)
Quarter: 2013Q1

REPORT INFORMATION
  Report Type: Spontaneous
  Country: US (occurrence: US)
  Receive Date: 20121106
  Receipt Date: 20130318
  Transmission Date: 20140127
  Serious: Yes (Life-Threatening, Hospitalization)
  Sender: FDA-Public Use
  Company Number: US-ASTRAZENECA-2012SE84067

PATIENT
  Age: 59 Year
  Sex: Female
  Weight: 69.9 kg

DRUGS (2)
  1. SEROQUEL [Suspect]
     Dosage: 200 MG AM NOON AND 400MG PM
     Route: 048
     Dates: start: 20051008
  2. DILAUDID [Suspect]
     Route: 065

REACTIONS (4)
  - Cardio-respiratory arrest [Recovered/Resolved]
  - Anaphylactic shock [Recovered/Resolved]
  - Weight decreased [Unknown]
  - Aphagia [Unknown]
